FAERS Safety Report 22988874 (Version 2)
Quarter: 2023Q4

REPORT INFORMATION
  Report Type: Spontaneous
  Country: JP (occurrence: JP)
  Receive Date: 20230927
  Receipt Date: 20231010
  Transmission Date: 20240109
  Serious: Yes (Life-Threatening, Hospitalization)
  Sender: FDA-Public Use
  Company Number: JP-STRIDES ARCOLAB LIMITED-2023SP014842

PATIENT
  Age: 78 Year
  Sex: Female

DRUGS (4)
  1. OLANZAPINE [Suspect]
     Active Substance: OLANZAPINE
     Indication: Schizophrenia
     Dosage: UNK, LOW DOSE
     Route: 048
  2. OLANZAPINE [Suspect]
     Active Substance: OLANZAPINE
     Dosage: 5 MILLIGRAM PER DAY
     Route: 048
  3. VALPROIC ACID [Concomitant]
     Active Substance: VALPROIC ACID
     Indication: Schizophrenia
     Dosage: 200 MILLIGRAM PER DAY
     Route: 048
  4. VALPROIC ACID [Concomitant]
     Active Substance: VALPROIC ACID
     Dosage: UNK, RESUMED
     Route: 065

REACTIONS (9)
  - Respiratory depression [Recovered/Resolved]
  - Cardiac failure congestive [Unknown]
  - Cardiomegaly [Unknown]
  - Pulmonary congestion [Unknown]
  - Respiratory acidosis [Unknown]
  - Metabolic alkalosis [Unknown]
  - Hypercapnia [Not Recovered/Not Resolved]
  - Hypoxia [Unknown]
  - Depressed level of consciousness [Recovered/Resolved]
